APPROVED DRUG PRODUCT: GALANTAMINE HYDROBROMIDE
Active Ingredient: GALANTAMINE HYDROBROMIDE
Strength: EQ 12MG BASE
Dosage Form/Route: TABLET;ORAL
Application: A077608 | Product #003
Applicant: HIKMA PHARMACEUTICALS USA INC
Approved: Feb 11, 2009 | RLD: No | RS: No | Type: DISCN